FAERS Safety Report 17006781 (Version 1)
Quarter: 2019Q4

REPORT INFORMATION
  Report Type: Spontaneous
  Country: FR (occurrence: FR)
  Receive Date: 20191107
  Receipt Date: 20191107
  Transmission Date: 20200122
  Serious: Yes (Hospitalization)
  Sender: FDA-Public Use
  Company Number: FR-JNJFOC-20190807222

PATIENT
  Age: 48 Year
  Sex: Female
  Weight: 58.1 kg

DRUGS (2)
  1. ADIAZINE [Suspect]
     Active Substance: SULFADIAZINE
     Indication: CEREBRAL TOXOPLASMOSIS
     Route: 048
     Dates: start: 20190703, end: 20190723
  2. PREZISTA [Suspect]
     Active Substance: DARUNAVIR ETHANOLATE
     Indication: CEREBRAL TOXOPLASMOSIS
     Route: 048
     Dates: start: 20190622

REACTIONS (2)
  - Acute kidney injury [Recovering/Resolving]
  - Lithiasis [Recovering/Resolving]

NARRATIVE: CASE EVENT DATE: 20190723
